FAERS Safety Report 21391928 (Version 1)
Quarter: 2022Q3

REPORT INFORMATION
  Report Type: Spontaneous
  Country: US (occurrence: None)
  Receive Date: 20220928
  Receipt Date: 20220928
  Transmission Date: 20221027
  Serious: Yes (Hospitalization)
  Sender: FDA-Public Use
  Company Number: None

PATIENT
  Age: 30 Year
  Sex: Male

DRUGS (1)
  1. VIJOICE [Suspect]
     Active Substance: ALPELISIB
     Indication: Hamartoma
     Dosage: FREQUENCY : DAILY;?
     Route: 048
     Dates: start: 20220425

REACTIONS (3)
  - Impaired healing [None]
  - Wound infection pseudomonas [None]
  - Enterococcal infection [None]

NARRATIVE: CASE EVENT DATE: 20220705
